FAERS Safety Report 9541589 (Version 1)
Quarter: 2013Q3

REPORT INFORMATION
  Report Type: Spontaneous
  Country: US (occurrence: None)
  Receive Date: 20130919
  Receipt Date: 20130919
  Transmission Date: 20140515
  Serious: Yes (Hospitalization)
  Sender: FDA-Public Use
  Company Number: None

PATIENT
  Age: 65 Year
  Sex: Female
  Weight: 73.6 kg

DRUGS (4)
  1. LITHIUM [Suspect]
     Indication: ACUTE MYELOID LEUKAEMIA
     Dosage: 300 MG 3X/DAY  PO
     Route: 048
     Dates: start: 20130901, end: 20130909
  2. TRETINOIN [Suspect]
     Indication: ACUTE MYELOID LEUKAEMIA
     Dosage: 20 MG  2X/DAY  PO
     Route: 048
     Dates: start: 20130904, end: 20130909
  3. ACYCLOVIR [Concomitant]
  4. REGLAN [Concomitant]

REACTIONS (12)
  - Catheter site erythema [None]
  - Antipsychotic drug level increased [None]
  - Mental status changes [None]
  - Confusional state [None]
  - Asthenia [None]
  - Chills [None]
  - Neutropenia [None]
  - Drug intolerance [None]
  - Memory impairment [None]
  - Asthenia [None]
  - Fatigue [None]
  - Neutrophil count decreased [None]
